FAERS Safety Report 5916556-3 (Version None)
Quarter: 2008Q4

REPORT INFORMATION
  Report Type: 
  Country: None (occurrence: None)
  Receive Date: 20081013
  Receipt Date: 20081007
  Transmission Date: 20090506
  Serious: Yes (Other)
  Sender: FDA-Public Use
  Company Number: B0541190A

PATIENT
  Age: 31 Year
  Sex: Male

DRUGS (2)
  1. HEPTODIN [Suspect]
     Dosage: 100MG PER DAY
     Route: 048
     Dates: start: 20020101
  2. ADEFOVIR DIPIVOXIL KIT [Concomitant]
     Dosage: 10MG PER DAY

REACTIONS (2)
  - HEPATITIS B DNA INCREASED [None]
  - TRANSAMINASES INCREASED [None]
